FAERS Safety Report 25449710 (Version 1)
Quarter: 2025Q2

REPORT INFORMATION
  Report Type: Spontaneous
  Country: FR (occurrence: FR)
  Receive Date: 20250618
  Receipt Date: 20250618
  Transmission Date: 20250717
  Serious: Yes (Life-Threatening, Hospitalization)
  Sender: SANDOZ
  Company Number: None

PATIENT
  Age: 25 Year
  Sex: Female

DRUGS (2)
  1. CODEINE [Suspect]
     Active Substance: CODEINE
     Indication: Migraine
     Route: 048
     Dates: start: 2020, end: 202503
  2. ACETAMINOPHEN [Suspect]
     Active Substance: ACETAMINOPHEN
     Indication: Migraine
     Route: 048
     Dates: start: 2020, end: 202503

REACTIONS (4)
  - Hepatic failure [Recovered/Resolved]
  - Acute kidney injury [Recovered/Resolved]
  - Withdrawal syndrome [Recovered/Resolved]
  - Drug abuse [Recovered/Resolved]

NARRATIVE: CASE EVENT DATE: 20240101
